APPROVED DRUG PRODUCT: GLEOSTINE
Active Ingredient: LOMUSTINE
Strength: 5MG
Dosage Form/Route: CAPSULE;ORAL
Application: N017588 | Product #004
Applicant: AZURITY PHARMACEUTICALS INC
Approved: Dec 19, 2014 | RLD: Yes | RS: No | Type: DISCN